FAERS Safety Report 18195558 (Version 1)
Quarter: 2020Q3

REPORT INFORMATION
  Report Type: Spontaneous
  Country: FR (occurrence: FR)
  Receive Date: 20200825
  Receipt Date: 20200825
  Transmission Date: 20201103
  Serious: Yes (Death, Hospitalization)
  Sender: FDA-Public Use
  Company Number: FR-PFIZER INC-2016361947

PATIENT
  Age: 80 Year
  Sex: Male
  Weight: 78 kg

DRUGS (3)
  1. TRAMADOL. [Concomitant]
     Active Substance: TRAMADOL
     Dosage: UNK
  2. LIBRAX [Concomitant]
     Active Substance: CHLORDIAZEPOXIDE HYDROCHLORIDE\CLIDINIUM BROMIDE
     Dosage: UNK
  3. SUTENT [Suspect]
     Active Substance: SUNITINIB MALATE
     Indication: RENAL CANCER METASTATIC
     Dosage: 37.5 MG, ONCE DAILY, CYCLIC (4 WEEKS FOLLOWED BY A 2?WEEK INTERVAL)
     Route: 048
     Dates: start: 2015

REACTIONS (5)
  - Dysgeusia [Recovered/Resolved]
  - Pulmonary embolism [Recovered/Resolved]
  - Respiratory distress [Fatal]
  - Mucosal inflammation [Recovered/Resolved]
  - Decreased appetite [Recovered/Resolved with Sequelae]

NARRATIVE: CASE EVENT DATE: 20160715
